FAERS Safety Report 22933776 (Version 2)
Quarter: 2024Q1

REPORT INFORMATION
  Report Type: Spontaneous
  Country: IL (occurrence: IL)
  Receive Date: 20230912
  Receipt Date: 20240226
  Transmission Date: 20240410
  Serious: Yes (Hospitalization, Other)
  Sender: FDA-Public Use
  Company Number: IL-PFIZER INC-202300295484

PATIENT
  Age: 70 Year
  Sex: Male

DRUGS (10)
  1. NIRMATRELVIR\RITONAVIR [Suspect]
     Active Substance: NIRMATRELVIR\RITONAVIR
     Indication: COVID-19 treatment
     Dosage: 300/100 MG
  2. NIRMATRELVIR\RITONAVIR [Suspect]
     Active Substance: NIRMATRELVIR\RITONAVIR
     Dosage: UNK, DAY (83-99)
  3. NIRMATRELVIR\RITONAVIR [Suspect]
     Active Substance: NIRMATRELVIR\RITONAVIR
     Dosage: UNK, CONTINUED FOR THREE WEEKS
  4. NIRMATRELVIR\RITONAVIR [Suspect]
     Active Substance: NIRMATRELVIR\RITONAVIR
     Dosage: UNK, PLACED ON ANOTHER 10-DAYS REGIMEN
  5. REMDESIVIR [Suspect]
     Active Substance: REMDESIVIR
     Indication: COVID-19 treatment
     Dosage: 200 MG
  6. REMDESIVIR [Suspect]
     Active Substance: REMDESIVIR
     Dosage: 100 MG, DAILY
  7. REMDESIVIR [Suspect]
     Active Substance: REMDESIVIR
     Dosage: UNK, 17-DAY COURSE
  8. REMDESIVIR [Suspect]
     Active Substance: REMDESIVIR
     Dosage: UNK, PLACED ON ANOTHER 10-DAYS REGIMEN
  9. DEXAMETHASONE [Suspect]
     Active Substance: DEXAMETHASONE
     Indication: COVID-19 treatment
     Dosage: 6 MG
  10. CILGAVIMAB\TIXAGEVIMAB [Suspect]
     Active Substance: CILGAVIMAB\TIXAGEVIMAB
     Indication: Prophylaxis
     Dosage: 150/150 MG
     Route: 030

REACTIONS (5)
  - Therapeutic product effect incomplete [Unknown]
  - Drug resistance [Unknown]
  - Drug resistance mutation [Unknown]
  - Off label use [Unknown]
  - Inappropriate schedule of product administration [Unknown]
